FAERS Safety Report 8422910-0 (Version None)
Quarter: 2012Q2

REPORT INFORMATION
  Report Type: 
  Country: None (occurrence: None)
  Receive Date: 20120608
  Receipt Date: 20120604
  Transmission Date: 20120825
  Serious: Yes (Hospitalization)
  Sender: FDA-Public Use
  Company Number: US-GLAXOSMITHKLINE-A0979726A

PATIENT
  Age: 59 Year
  Sex: Female

DRUGS (3)
  1. FLOLAN [Suspect]
     Dosage: 35.7NGKM CONTINUOUS
     Route: 042
     Dates: start: 20021001
  2. TRACLEER [Concomitant]
  3. ASPIRIN [Concomitant]

REACTIONS (7)
  - MUSCULAR WEAKNESS [None]
  - FALL [None]
  - LIMB INJURY [None]
  - CONTUSION [None]
  - RESPIRATORY DISTRESS [None]
  - PNEUMONIA [None]
  - HEAD INJURY [None]
